FAERS Safety Report 6839517-9 (Version None)
Quarter: 2010Q3

REPORT INFORMATION
  Report Type: 
  Country: None (occurrence: None)
  Receive Date: 20100714
  Receipt Date: 20091119
  Transmission Date: 20110219
  Serious: No
  Sender: FDA-Public Use
  Company Number: A0818141A

PATIENT
  Age: 48 Year
  Sex: Male

DRUGS (4)
  1. FLOVENT [Suspect]
     Dosage: 4PUFF AS REQUIRED
     Route: 055
     Dates: start: 20091109
  2. FLONASE [Concomitant]
  3. PRILOSEC [Concomitant]
  4. TYLENOL [Concomitant]

REACTIONS (2)
  - DRUG INEFFECTIVE [None]
  - SPUTUM RETENTION [None]
